FAERS Safety Report 6217114-6 (Version None)
Quarter: 2009Q2

REPORT INFORMATION
  Report Type: 
  Country: None (occurrence: None)
  Receive Date: 20090606
  Receipt Date: 20090524
  Transmission Date: 20091009
  Serious: Yes (Life-Threatening)
  Sender: FDA-Public Use
  Company Number: ES-PFIZER INC-2009217541

PATIENT
  Age: 58 Year

DRUGS (9)
  1. SUNITINIB MALATE [Suspect]
     Indication: RENAL CANCER
     Dosage: 50 MG, 1X/DAY
     Route: 048
     Dates: start: 20081001, end: 20090425
  2. ENALAPRIL MALEATE [Suspect]
     Dosage: 20 MG, 1X/DAY
     Route: 048
     Dates: start: 20090406, end: 20090520
  3. PARIZAC [Concomitant]
     Indication: PROPHYLAXIS AGAINST GASTROINTESTINAL ULCER
     Dosage: 20 MG, 1X/DAY
     Route: 048
  4. ORFIDAL [Concomitant]
     Indication: ANXIETY
     Dosage: 1 MG, 2X/DAY
     Route: 048
  5. TRAMADOL [Concomitant]
     Indication: PAIN
     Dosage: 200 MG, 2X/DAY
     Route: 048
  6. ZYLORIC ^FAES^ [Concomitant]
     Indication: HYPERURICAEMIA
     Dosage: 100 MG, 1X/DAY
     Route: 048
  7. LOPID [Concomitant]
     Indication: HYPERCHOLESTEROLAEMIA
     Dosage: 600 MG, 1X/DAY
     Route: 048
  8. LOGIMAX [Concomitant]
     Indication: HYPERTENSION
     Dosage: 5/50 MG, 1X/DAY
     Route: 048
  9. NEO RINACTIVE [Concomitant]
     Indication: HYPERSENSITIVITY
     Dosage: 100 MG, 4X/DAY
     Route: 048

REACTIONS (1)
  - ANGIOEDEMA [None]
